FAERS Safety Report 8832726 (Version 1)
Quarter: 2012Q4

REPORT INFORMATION
  Report Type: Spontaneous
  Country: US (occurrence: None)
  Receive Date: 20121009
  Receipt Date: 20121009
  Transmission Date: 20130627
  Serious: Yes (Hospitalization)
  Sender: FDA-Public Use
  Company Number: None

PATIENT

DRUGS (2)
  1. WARFARIN [Suspect]
     Indication: ANTICOAGULANT THERAPY
     Dates: start: 20120817, end: 20121001
  2. WARFARIN [Suspect]

REACTIONS (2)
  - Product quality issue [None]
  - Product dosage form confusion [None]
